FAERS Safety Report 14868246 (Version 1)
Quarter: 2018Q2

REPORT INFORMATION
  Report Type: Spontaneous
  Country: US (occurrence: US)
  Receive Date: 20180509
  Receipt Date: 20180509
  Transmission Date: 20180711
  Serious: Yes (Other)
  Sender: FDA-Public Use
  Company Number: US-RECORDATI RARE DISEASES INC.-US-R13005-18-00113

PATIENT
  Age: 8 Year
  Sex: Female

DRUGS (1)
  1. ASPARAGINASE [Suspect]
     Active Substance: ASPARAGINASE
     Indication: T-CELL TYPE ACUTE LEUKAEMIA
     Route: 065

REACTIONS (11)
  - Meningitis viral [Unknown]
  - Haemophilus infection [Unknown]
  - Pyrexia [Unknown]
  - Bone marrow failure [Unknown]
  - Nodal arrhythmia [Unknown]
  - Disease recurrence [Unknown]
  - Pneumonia pneumococcal [Unknown]
  - Blood immunoglobulin M decreased [Unknown]
  - Thrombosis [Unknown]
  - Skin papilloma [Unknown]
  - Monocytopenia [Unknown]
